FAERS Safety Report 10052215 (Version 1)
Quarter: 2014Q2

REPORT INFORMATION
  Report Type: Spontaneous
  Country: US (occurrence: None)
  Receive Date: 20140401
  Receipt Date: 20140401
  Transmission Date: 20141212
  Serious: Yes (Other)
  Sender: FDA-Public Use
  Company Number: None

PATIENT
  Age: 37 Year
  Sex: Female
  Weight: 91.63 kg

DRUGS (8)
  1. OXYCODONE [Concomitant]
  2. OXYCONTIN [Concomitant]
  3. SOMA [Concomitant]
  4. GABAPENTIN [Concomitant]
  5. LORAZEPAM [Concomitant]
  6. CITALOPRAM, 20 MG, MYLAN [Suspect]
     Indication: DEPRESSION
     Route: 048
     Dates: start: 20140321, end: 20140325
  7. CITALOPRAM, 20 MG, MYLAN [Suspect]
     Indication: ANXIETY
     Route: 048
     Dates: start: 20140321, end: 20140325
  8. LISINOPRIL [Concomitant]

REACTIONS (4)
  - Amnesia [None]
  - Loss of consciousness [None]
  - Headache [None]
  - Arthralgia [None]
